FAERS Safety Report 8446944-5 (Version None)
Quarter: 2012Q2

REPORT INFORMATION
  Report Type: 
  Country: None (occurrence: None)
  Receive Date: 20120613
  Receipt Date: 20120613
  Transmission Date: 20120825
  Serious: Yes (Other)
  Sender: FDA-Public Use
  Company Number: None

PATIENT
  Sex: Female

DRUGS (1)
  1. YAZ [Suspect]
     Indication: ACNE
     Dosage: DAILY PO
     Route: 048
     Dates: start: 20120327, end: 20120526

REACTIONS (5)
  - HYPERTENSION [None]
  - LYMPHADENITIS [None]
  - EYELID OEDEMA [None]
  - ACNE [None]
  - MUSCULOSKELETAL CHEST PAIN [None]
